FAERS Safety Report 6951068-X (Version None)
Quarter: 2010Q3

REPORT INFORMATION
  Report Type: 
  Country: None (occurrence: None)
  Receive Date: 20100828
  Receipt Date: 20100312
  Transmission Date: 20110219
  Serious: No
  Sender: FDA-Public Use
  Company Number: US-ABBOTT-10P-163-0632196-00

PATIENT
  Sex: Male

DRUGS (3)
  1. NIASPAN [Suspect]
     Indication: BLOOD CHOLESTEROL INCREASED
     Dosage: AT BEDTIME
     Dates: start: 20091101, end: 20100301
  2. NIASPAN [Suspect]
     Dosage: AT BEDTIME
     Dates: start: 20100301, end: 20100301
  3. NIASPAN [Suspect]
     Dosage: AT BEDTIME
     Dates: start: 20100301

REACTIONS (3)
  - PRURITUS [None]
  - RASH PAPULAR [None]
  - URTICARIA [None]
